FAERS Safety Report 5830055-9 (Version None)
Quarter: 2008Q3

REPORT INFORMATION
  Report Type: 
  Country: None (occurrence: None)
  Receive Date: 20080801
  Receipt Date: 20080725
  Transmission Date: 20090109
  Serious: Yes (Hospitalization)
  Sender: FDA-Public Use
  Company Number: FI-AVENTIS-200817127GDDC

PATIENT
  Age: 53 Year
  Sex: Female

DRUGS (12)
  1. ARAVA [Suspect]
     Indication: RHEUMATOID ARTHRITIS
     Route: 048
     Dates: start: 20070803, end: 20080514
  2. ENBREL [Suspect]
     Indication: RHEUMATOID ARTHRITIS
     Route: 058
     Dates: start: 20070301, end: 20070704
  3. PREDNISON [Suspect]
     Indication: RHEUMATOID ARTHRITIS
     Dosage: DOSE: 2.5-7.5
     Route: 048
  4. MABTHERA [Suspect]
     Indication: RHEUMATOID ARTHRITIS
     Route: 042
     Dates: start: 20070701
  5. SANDIMMUNE [Concomitant]
     Indication: RHEUMATOID ARTHRITIS
     Route: 048
     Dates: start: 20070101, end: 20070401
  6. CIPRAMIL                           /00582602/ [Concomitant]
     Route: 048
  7. COZAAR [Concomitant]
     Route: 048
  8. IDEOS                              /00944201/ [Concomitant]
     Dosage: DOSE: 1000MG/800IU
     Route: 048
  9. ANTIBACTERIALS FOR SYSTEMIC USE [Concomitant]
     Dosage: DOSE: UNK
     Route: 042
     Dates: start: 20071201
  10. TARGOCID [Concomitant]
     Route: 042
  11. ZYVOXID [Concomitant]
     Route: 048
     Dates: start: 20070101
  12. DALACIN                            /00166002/ [Concomitant]
     Route: 048
     Dates: start: 20070101, end: 20070501

REACTIONS (7)
  - CEREBRAL HYPOPERFUSION [None]
  - CEREBRAL INFARCTION [None]
  - DEMYELINATION [None]
  - DUODENAL ULCER [None]
  - HYPOAESTHESIA [None]
  - LUNG INFECTION PSEUDOMONAL [None]
  - NAUSEA [None]
